FAERS Safety Report 23710937 (Version 16)
Quarter: 2025Q4

REPORT INFORMATION
  Report Type: Report from Study
  Country: EU (occurrence: EU)
  Receive Date: 20240405
  Receipt Date: 20251202
  Transmission Date: 20260118
  Serious: Yes (Other)
  Sender: ABBVIE
  Company Number: EU-ABBVIE-5702565

PATIENT
  Age: 74 Year
  Sex: Female

DRUGS (26)
  1. CARBIDOPA\LEVODOPA [Suspect]
     Active Substance: CARBIDOPA\LEVODOPA
     Indication: Parkinson^s disease
     Dosage: 20 MG + 5 MG (VIA NJ)?FREQUENCY TEXT: MORN:15CC;MAINT:6.8CC/H;EXTR:2CC?LAST ADMIN DATE: MAR 2024
     Route: 050
     Dates: start: 20240307
  2. CARBIDOPA\LEVODOPA [Suspect]
     Active Substance: CARBIDOPA\LEVODOPA
     Dosage: 20 MG + 5 MG?FREQUENCY TEXT: MORN:15CC;MAINT:6.2CC/H;EXTR:2CC
     Route: 050
     Dates: start: 20240522, end: 20240617
  3. CARBIDOPA\LEVODOPA [Suspect]
     Active Substance: CARBIDOPA\LEVODOPA
     Dosage: 20 MG + 5 MG?FREQUENCY TEXT: MORN:15CC;MAINT:6.5CC/H;EXTR:2CC
     Route: 050
     Dates: start: 20240330, end: 20240522
  4. CARBIDOPA\LEVODOPA [Suspect]
     Active Substance: CARBIDOPA\LEVODOPA
     Dosage: 20 MG + 5 MG?MAINTENANCE DOSE WAS REDUCED TO 5.6 ML/H?FREQUENCY TEXT: MORN:15CC;MAINT:5.6CC/H;EXT...
     Route: 050
     Dates: start: 20240717, end: 20240721
  5. CARBIDOPA\LEVODOPA [Suspect]
     Active Substance: CARBIDOPA\LEVODOPA
     Dosage: FREQUENCY TEXT: MORN:15CC;MAINT:5.3CC/H;EXTR:2CC
     Route: 050
     Dates: start: 20240721, end: 20240727
  6. CARBIDOPA\LEVODOPA [Suspect]
     Active Substance: CARBIDOPA\LEVODOPA
     Dosage: 20 MG + 5 MG?FREQUENCY TEXT: MORN:15CC;MAINT:5.9CC/H;EXTR:2CC
     Route: 050
     Dates: start: 20240617, end: 20240717
  7. CARBIDOPA\LEVODOPA [Suspect]
     Active Substance: CARBIDOPA\LEVODOPA
     Dosage: 20 MG + 5 MG?FREQUENCY TEXT: MORN:15CC;MAINT:5CC/H;EXTR:2CC
     Route: 050
     Dates: start: 20240727, end: 20240810
  8. CARBIDOPA\LEVODOPA [Suspect]
     Active Substance: CARBIDOPA\LEVODOPA
     Dosage: 20 MG + 5 MG?FREQUENCY TEXT: MORN:10CC;MAINT:3CC/H;EXTR:1CC
     Route: 050
     Dates: start: 202403, end: 20240330
  9. CARBIDOPA\LEVODOPA [Suspect]
     Active Substance: CARBIDOPA\LEVODOPA
     Dosage: 20 MG + 5 MG?FREQUENCY TEXT: MORN:15CC;MAINT:4.8CC/H;EXTR:2CC?LAST ADMIN DATE:2024
     Route: 050
     Dates: start: 20240810
  10. CARBIDOPA\LEVODOPA [Suspect]
     Active Substance: CARBIDOPA\LEVODOPA
     Dosage: 20 MG + 5 MG
     Route: 050
     Dates: start: 20240915
  11. CARBIDOPA\LEVODOPA [Suspect]
     Active Substance: CARBIDOPA\LEVODOPA
     Dosage: MORNING DOSE 15CC; CONTINUOUS DOSE 3.3CC/H; EXTRA DOSE 2CC 20MG LEVODOPA + 5MG CARBIDOPA
     Route: 050
     Dates: start: 20251106
  12. ESOMEPRAZOLE [Concomitant]
     Active Substance: ESOMEPRAZOLE
     Indication: Product used for unknown indication
     Dosage: 1 TABLET?FORM STRENGTH: 40 MILLIGRAM?START DATE TEXT: BEFORE DUODOPA
     Route: 048
  13. ALBUTEROL [Concomitant]
     Active Substance: ALBUTEROL
     Indication: Product used for unknown indication
     Dosage: TIME INTERVAL: 0.33333333 DAYS: 6 PUFF?FORM STRENGTH: 100 MG?START DATE TEXT: BEFORE DUODOPA?FOA-...
  14. GLYCERIN [Concomitant]
     Active Substance: GLYCERIN
     Indication: Constipation
     Dosage: FREQUENCY TEXT: SOS ?START DATE TEXT: BEFORE DUODOPA
     Route: 054
  15. MORPHINE [Concomitant]
     Active Substance: MORPHINE
     Indication: Pain
     Dosage: FREQUENCY TEXT: SOS?START DATE TEXT: BEFORE DUODOPA
     Route: 058
  16. BUDESONIDE [Concomitant]
     Active Substance: BUDESONIDE
     Indication: Product used for unknown indication
     Dosage: 2 PUFF?FORM STRENGTH: 200 MICROGRAM?- START DATE TEXT: BEFORE DUODOPA?ROA-RESPIRATORY (INHALATION)
  17. BISACODYL [Concomitant]
     Active Substance: BISACODYL
     Indication: Constipation
     Dosage: 1 TABLET?FORM STRENGTH: 5 MILLIGRAM?START DATE TEXT: BEFORE DUODOPA
     Route: 048
  18. CHOLECALCIFEROL [Concomitant]
     Active Substance: CHOLECALCIFEROL
     Indication: Product used for unknown indication
     Dosage: 5 DROP?START DATE TEXT: BEFORE DUODOPA
     Route: 048
  19. IPRATROPIUM BROMIDE [Concomitant]
     Active Substance: IPRATROPIUM BROMIDE
     Indication: Product used for unknown indication
     Dosage: TIME INTERVAL: 0.33333333 DAYS: START DATE TEXT: BEFORE DUODOPA ROA-RESPIRATORY (INHALATION)
  20. ENOXAPARIN SODIUM [Concomitant]
     Active Substance: ENOXAPARIN SODIUM
     Indication: Product used for unknown indication
     Dosage: FORM STRENGTH: 20 MILLIGRAM?START DATE TEXT: BEFORE DUODOPA
     Route: 058
  21. MAGNESIUM ASPARTATE [Concomitant]
     Active Substance: MAGNESIUM ASPARTATE
     Indication: Product used for unknown indication
     Dosage: 1 SACHET?FORM STRENGTH: 1229.6 MILLIGRAM?START DATE TEXT: BEFORE DUODOPA
     Route: 048
  22. LEVOTHYROXINE SODIUM [Concomitant]
     Active Substance: LEVOTHYROXINE SODIUM
     Indication: Hypothyroidism
     Dosage: 1 TABLET?FORM STRENGTH: 0.125 MILLIGRAM?START DATE TEXT: BEFORE DUODOPA
     Route: 048
  23. ROTIGOTINE [Concomitant]
     Active Substance: ROTIGOTINE
     Indication: Product used for unknown indication
     Dosage: START DATE TEXT: BEFORE DUODOPA
     Route: 062
  24. OXAZEPAM [Concomitant]
     Active Substance: OXAZEPAM
     Indication: Product used for unknown indication
     Dosage: 1 TABLET?FORM STRENGTH: 15 MILLIGRAM?FREQUENCY TEXT: AT BEDTIME?START DATE TEXT: BEFORE DUODOPA
     Route: 048
  25. FENTANYL [Concomitant]
     Active Substance: FENTANYL
     Indication: Product used for unknown indication
     Dosage: FORM STRENGTH: 25 MICROGRAM ?START DATE TEXT: BEFORE DUODOPA
     Route: 062
  26. SENNOSIDES A AND B [Concomitant]
     Active Substance: SENNOSIDES A AND B
     Indication: Constipation
     Dosage: 2 TABLET?FREQUENCY TEXT: AT DINNER?START DATE TEXT: BEFORE DUODOPA?FORM STRENGTH: 12 MILLIGRAM
     Route: 048

REACTIONS (5)
  - Wound infection [Unknown]
  - Weight increased [Not Recovered/Not Resolved]
  - Dyskinesia [Not Recovered/Not Resolved]
  - Hallucination [Recovered/Resolved]
  - Dysphonia [Not Recovered/Not Resolved]

NARRATIVE: CASE EVENT DATE: 20240301
